FAERS Safety Report 7440338-7 (Version None)
Quarter: 2011Q2

REPORT INFORMATION
  Report Type: 
  Country: None (occurrence: None)
  Receive Date: 20110427
  Receipt Date: 20110421
  Transmission Date: 20111010
  Serious: Yes (Hospitalization)
  Sender: FDA-Public Use
  Company Number: GB-MERCK-1003GBR00084

PATIENT
  Sex: Male

DRUGS (4)
  1. JANUVIA [Suspect]
     Indication: TYPE 2 DIABETES MELLITUS
     Route: 048
  2. SILDENAFIL CITRATE [Concomitant]
     Route: 065
  3. GLIPIZIDE [Suspect]
     Route: 065
  4. VARDENAFIL DIHYDROCHLORIDE [Concomitant]
     Route: 065

REACTIONS (15)
  - OEDEMA PERIPHERAL [None]
  - MUSCULOSKELETAL STIFFNESS [None]
  - DRUG INTERACTION [None]
  - DYSPEPSIA [None]
  - JOINT STIFFNESS [None]
  - RASH [None]
  - SEXUAL DYSFUNCTION [None]
  - ERECTILE DYSFUNCTION [None]
  - PAIN IN EXTREMITY [None]
  - BONE EROSION [None]
  - ARTHRITIS [None]
  - MOVEMENT DISORDER [None]
  - THERAPEUTIC RESPONSE DECREASED [None]
  - ARTHRALGIA [None]
  - GRIP STRENGTH [None]
